FAERS Safety Report 9851393 (Version 2)
Quarter: 2014Q1

REPORT INFORMATION
  Report Type: Spontaneous
  Country: US (occurrence: US)
  Receive Date: 20140129
  Receipt Date: 20140326
  Transmission Date: 20141002
  Serious: Yes (Life-Threatening)
  Sender: FDA-Public Use
  Company Number: US-ROCHE-1339458

PATIENT
  Age: 51 Year
  Sex: Female
  Weight: 93.98 kg

DRUGS (15)
  1. XOLAIR [Suspect]
     Indication: ASTHMA
     Dosage: MOST RCENT DOSE PRIOR TO SAE ON 24/SEP/2008
     Route: 065
     Dates: end: 20091028
  2. ADVAIR [Concomitant]
     Indication: ASTHMA
     Dosage: 500/50 MCG
     Route: 055
     Dates: start: 2002
  3. ADVAIR [Concomitant]
     Indication: HYPERSENSITIVITY
  4. ALLEGRA [Concomitant]
     Indication: ASTHMA
     Route: 048
     Dates: start: 2000
  5. ASPIRIN [Concomitant]
     Indication: ANTICOAGULANT THERAPY
     Route: 048
     Dates: start: 2005
  6. SPIRIVA [Concomitant]
     Indication: ASTHMA
     Dosage: 1 PUFF, QD
     Route: 055
  7. PRILOSEC [Concomitant]
     Route: 048
     Dates: start: 1999
  8. REQUIP [Concomitant]
     Route: 048
     Dates: start: 2005
  9. SINGULAIR [Concomitant]
     Indication: ASTHMA
     Route: 048
     Dates: start: 2000
  10. PREDNISONE [Concomitant]
     Indication: ASTHMA
     Route: 048
     Dates: start: 1995
  11. XANAX [Concomitant]
     Indication: ANXIETY
     Route: 048
     Dates: start: 2006
  12. ALBUTEROL [Concomitant]
     Indication: ASTHMA
     Route: 055
     Dates: start: 1996
  13. GLIPIZIDE [Concomitant]
     Dosage: AS AND WHEN REQUIRED OR TID
     Route: 048
     Dates: start: 2008
  14. CARDIZEM [Concomitant]
     Indication: HYPERTENSION
     Route: 048
     Dates: start: 2006
  15. CITALOPRAM [Concomitant]
     Indication: DEPRESSION
     Route: 048
     Dates: start: 2008

REACTIONS (1)
  - Anaphylactic reaction [Recovered/Resolved]
